FAERS Safety Report 8793182 (Version 3)
Quarter: 2012Q4

REPORT INFORMATION
  Report Type: 
  Country: CN (occurrence: CN)
  Receive Date: 20120918
  Receipt Date: 20121019
  Transmission Date: 20130627
  Serious: Yes (Other)
  Sender: FDA-Public Use
  Company Number: CN-ELI_LILLY_AND_COMPANY-CN201209003882

PATIENT
  Age: 40 Year
  Sex: Male

DRUGS (2)
  1. BYETTA [Suspect]
     Indication: HYPERGLYCAEMIA
     Dosage: UNK UNK, unknown
     Route: 058
  2. METFORMIN [Concomitant]

REACTIONS (2)
  - Cachexia [Unknown]
  - Lipids decreased [Unknown]
